FAERS Safety Report 5312902-2 (Version None)
Quarter: 2007Q1

REPORT INFORMATION
  Report Type: 
  Country: None (occurrence: None)
  Receive Date: 20070201
  Receipt Date: 20061208
  Transmission Date: 20070707
  Serious: No
  Sender: FDA-Public Use
  Company Number: 259646

PATIENT
  Age: 79 Year
  Sex: Female

DRUGS (4)
  1. LEVEMIR [Suspect]
     Indication: INSULIN-REQUIRING TYPE II DIABETES MELLITUS
     Dosage: SUBCUTANEOUS
     Route: 058
  2. GLUCOFORMIN (METFORMIN HYDROCHLORIDE) TABLET [Concomitant]
  3. NOVOLIN N [Concomitant]
  4. PRANDIN (REPAGLINIDE) TABLET [Concomitant]

REACTIONS (1)
  - WEIGHT INCREASED [None]
